FAERS Safety Report 15963970 (Version 2)
Quarter: 2019Q1

REPORT INFORMATION
  Report Type: Spontaneous
  Country: BR (occurrence: BR)
  Receive Date: 20190214
  Receipt Date: 20190219
  Transmission Date: 20190417
  Serious: Yes (Other)
  Sender: FDA-Public Use
  Company Number: PHHY2019BR031533

PATIENT
  Age: 22 Year
  Sex: Female
  Weight: 51 kg

DRUGS (1)
  1. TEGRETOL [Suspect]
     Active Substance: CARBAMAZEPINE
     Indication: SEIZURE
     Dosage: 1 DF, QD
     Route: 048

REACTIONS (2)
  - Hypoglycaemia [Recovering/Resolving]
  - Seizure [Recovering/Resolving]
